FAERS Safety Report 10511798 (Version 3)
Quarter: 2014Q4

REPORT INFORMATION
  Report Type: Spontaneous
  Country: US (occurrence: US)
  Receive Date: 20141010
  Receipt Date: 20141126
  Transmission Date: 20150528
  Serious: Yes (Death, Hospitalization)
  Sender: FDA-Public Use
  Company Number: US-INCYTE CORPORATION-2014IN002543

PATIENT
  Age: 81 Year
  Sex: Female

DRUGS (2)
  1. DACOGEN [Concomitant]
     Active Substance: DECITABINE
     Dosage: 35 MG DAYS 1-5 OF 4 WEEK CYCLE
     Route: 042
     Dates: start: 20140908, end: 20140912
  2. JAKAFI [Suspect]
     Active Substance: RUXOLITINIB
     Indication: MYELOFIBROSIS
     Dosage: 15 MG, BID
     Route: 048
     Dates: start: 2012, end: 20140903

REACTIONS (2)
  - Fall [Fatal]
  - Face injury [Unknown]

NARRATIVE: CASE EVENT DATE: 20140916
